FAERS Safety Report 7861165-2 (Version None)
Quarter: 2011Q4

REPORT INFORMATION
  Report Type: 
  Country: None (occurrence: None)
  Receive Date: 20111027
  Receipt Date: 20111020
  Transmission Date: 20120403
  Serious: No
  Sender: FDA-Public Use
  Company Number: US-PFIZER INC-2007059756

PATIENT
  Sex: Female
  Weight: 63.6 kg

DRUGS (8)
  1. CHANTIX [Suspect]
     Indication: SMOKING CESSATION THERAPY
     Dosage: 0.5 MG, DAILY
     Dates: start: 20070627, end: 20070101
  2. PENTOXIFYLLINE [Concomitant]
  3. LIPITOR [Concomitant]
  4. CHANTIX [Suspect]
     Dosage: 1 MG, 2X/DAY
     Dates: start: 20070704
  5. ZOLOFT [Concomitant]
  6. CLONAZEPAM [Concomitant]
     Dosage: 1 MG, 1X/DAY EVERY NIGHT PRIOR TO BED
  7. LISINOPRIL [Concomitant]
     Indication: HYPERTENSION
  8. CHANTIX [Suspect]
     Dosage: 0.5 MG, 2X/DAY
     Dates: start: 20070101, end: 20070101

REACTIONS (3)
  - NAUSEA [None]
  - TREMOR [None]
  - VOMITING [None]
